FAERS Safety Report 13259000 (Version 2)
Quarter: 2017Q1

REPORT INFORMATION
  Report Type: Spontaneous
  Country: US (occurrence: US)
  Receive Date: 20170222
  Receipt Date: 20170310
  Transmission Date: 20170428
  Serious: Yes (Other)
  Sender: FDA-Public Use
  Company Number: US-JNJFOC-20170218768

PATIENT
  Sex: Female

DRUGS (17)
  1. POTASSIUM HYDROXIDE. [Concomitant]
     Active Substance: POTASSIUM HYDROXIDE
     Route: 065
  2. BIOTIN [Concomitant]
     Active Substance: BIOTIN
     Route: 065
  3. PROTONIX [Concomitant]
     Active Substance: PANTOPRAZOLE SODIUM
     Route: 065
  4. XARELTO [Suspect]
     Active Substance: RIVAROXABAN
     Indication: THROMBOSIS
     Route: 048
     Dates: start: 20170120
  5. COQ10 [Concomitant]
     Active Substance: UBIDECARENONE
     Route: 065
  6. LITHIUM CARBONATE. [Concomitant]
     Active Substance: LITHIUM CARBONATE
     Route: 065
  7. ATENOLOL. [Concomitant]
     Active Substance: ATENOLOL
     Route: 065
  8. XARELTO [Suspect]
     Active Substance: RIVAROXABAN
     Indication: THROMBOSIS
     Route: 048
     Dates: start: 2016
  9. DEMADEX [Concomitant]
     Active Substance: TORSEMIDE
     Route: 065
  10. VITAMIN D3 [Concomitant]
     Active Substance: CHOLECALCIFEROL
     Route: 065
  11. NEURONTIN [Concomitant]
     Active Substance: GABAPENTIN
     Route: 065
  12. PROZAC [Concomitant]
     Active Substance: FLUOXETINE HYDROCHLORIDE
     Route: 065
  13. ZANAFLEX [Concomitant]
     Active Substance: TIZANIDINE HYDROCHLORIDE
     Route: 065
  14. ALDACTONE [Concomitant]
     Active Substance: SPIRONOLACTONE
     Route: 065
  15. TRAZODONE [Concomitant]
     Active Substance: TRAZODONE HYDROCHLORIDE
     Route: 065
  16. ZYPREXA [Concomitant]
     Active Substance: OLANZAPINE
     Route: 065
  17. IRON [Concomitant]
     Active Substance: IRON
     Route: 065

REACTIONS (2)
  - Swelling [Not Recovered/Not Resolved]
  - Pulmonary thrombosis [Not Recovered/Not Resolved]
